FAERS Safety Report 8484053-X (Version None)
Quarter: 2012Q3

REPORT INFORMATION
  Report Type: 
  Country: None (occurrence: None)
  Receive Date: 20120703
  Receipt Date: 20120626
  Transmission Date: 20120928
  Serious: Yes (Hospitalization, Other)
  Sender: FDA-Public Use
  Company Number: US-BAYER-2011-082014

PATIENT
  Age: 23 Year
  Sex: Female
  Weight: 56.689 kg

DRUGS (9)
  1. DEPO-PROVERA [Concomitant]
  2. METHADONE HCL [Concomitant]
  3. YASMIN [Suspect]
     Dosage: UNK
     Dates: start: 20030101, end: 20050101
  4. OXYCONTIN [Concomitant]
  5. ANTIBIOTICS [Concomitant]
  6. DILAUDID [Concomitant]
     Indication: PAIN
  7. OPIOIDS [Concomitant]
  8. LEVETIRACETAM [Concomitant]
     Dosage: 500 MG, UNK
  9. PERCOCET [Concomitant]

REACTIONS (9)
  - GALLBLADDER INJURY [None]
  - CONVULSION [None]
  - PANCREATITIS ACUTE [None]
  - PORTAL VEIN THROMBOSIS [None]
  - DEEP VEIN THROMBOSIS [None]
  - AMENORRHOEA [None]
  - PANCREATITIS NECROTISING [None]
  - INJURY [None]
  - CHOLECYSTITIS CHRONIC [None]
